FAERS Safety Report 8352557-6 (Version None)
Quarter: 2012Q2

REPORT INFORMATION
  Report Type: 
  Country: None (occurrence: None)
  Receive Date: 20120509
  Receipt Date: 20120502
  Transmission Date: 20120825
  Serious: Yes (Other)
  Sender: FDA-Public Use
  Company Number: 2012SP022483

PATIENT

DRUGS (2)
  1. TEMOZOLOMIDE [Suspect]
     Indication: GLIOBLASTOMA
     Dosage: 200 MG/M2, QD, UNK
  2. ENZASTAURIN (ENZASTAURIN) [Suspect]
     Indication: GLIOBLASTOMA
     Dosage: 250;500 MG;BID;QD

REACTIONS (2)
  - CONVULSION [None]
  - APHASIA [None]
